FAERS Safety Report 7366051-2 (Version None)
Quarter: 2011Q1

REPORT INFORMATION
  Report Type: 
  Country: None (occurrence: None)
  Receive Date: 20110225
  Receipt Date: 20110120
  Transmission Date: 20110831
  Serious: No
  Sender: FDA-Public Use
  Company Number: 322002

PATIENT
  Age: 74 Year
  Sex: Female

DRUGS (1)
  1. VICTOZA [Suspect]
     Indication: TYPE 2 DIABETES MELLITUS
     Dosage: SUBCUTANEOUS
     Route: 058
     Dates: end: 20110121

REACTIONS (6)
  - VISUAL IMPAIRMENT [None]
  - PALPITATIONS [None]
  - FATIGUE [None]
  - HYPERSOMNIA [None]
  - BLOOD GLUCOSE DECREASED [None]
  - TREMOR [None]
